FAERS Safety Report 11208503 (Version 1)
Quarter: 2015Q2

REPORT INFORMATION
  Report Type: Spontaneous
  Country: US (occurrence: None)
  Receive Date: 20150619
  Receipt Date: 20150619
  Transmission Date: 20150821
  Serious: No
  Sender: FDA-Public Use
  Company Number: None

PATIENT
  Age: 18 Year
  Sex: Female
  Weight: 67.59 kg

DRUGS (8)
  1. ERYTHROMYCIN. [Concomitant]
     Active Substance: ERYTHROMYCIN
  2. CRANBERRY FRUIT [Concomitant]
  3. SPRINGVALLEY NATURAL CALCIUM W/ VITAMIN D3 [Concomitant]
  4. ADIPALENE [Concomitant]
  5. SPRINGVALLEY VITAMIN C [Concomitant]
  6. FAMOTIDINE. [Concomitant]
     Active Substance: FAMOTIDINE
  7. SHOPKO WOMEN^S ONEDAILY DIETARY SUPPLEMENT (BLOOD PRESSURE-HEART, BREAST AND BONE SUPPORT) [Concomitant]
  8. SULFAMETHOXAZOLE [Suspect]
     Active Substance: SULFAMETHOXAZOLE
     Indication: URINARY TRACT INFECTION
     Dosage: 1 PILL
     Route: 048
     Dates: start: 20150602, end: 20150606

REACTIONS (4)
  - Erythema [None]
  - Pain [None]
  - Increased tendency to bruise [None]
  - Fatigue [None]

NARRATIVE: CASE EVENT DATE: 20150606
